FAERS Safety Report 22311940 (Version 1)
Quarter: 2023Q2

REPORT INFORMATION
  Report Type: Spontaneous
  Country: US (occurrence: None)
  Receive Date: 20230512
  Receipt Date: 20230512
  Transmission Date: 20230721
  Serious: No
  Sender: FDA-Public Use
  Company Number: 2023A097382

PATIENT

DRUGS (1)
  1. FARXIGA [Suspect]
     Active Substance: DAPAGLIFLOZIN PROPANEDIOL
     Dosage: UNKNOWN
     Route: 048
     Dates: start: 202304, end: 20230423

REACTIONS (8)
  - Peripheral swelling [Unknown]
  - Dyspnoea [Unknown]
  - Brain fog [Unknown]
  - Urine output decreased [Unknown]
  - Weight increased [Unknown]
  - Joint swelling [Unknown]
  - Oedema peripheral [Unknown]
  - Product use issue [Unknown]
